FAERS Safety Report 6382857-0 (Version None)
Quarter: 2009Q3

REPORT INFORMATION
  Report Type: 
  Country: None (occurrence: None)
  Receive Date: 20090928
  Receipt Date: 20090928
  Transmission Date: 20100115
  Serious: No
  Sender: FDA-Public Use
  Company Number: None

PATIENT
  Sex: Female

DRUGS (1)
  1. TOPAMAX [Suspect]
     Indication: MIGRAINE
     Dosage: 25MG IN AM + 50MG PO
     Route: 048
     Dates: start: 20050901, end: 20090801

REACTIONS (10)
  - ASTHENIA [None]
  - CONFUSIONAL STATE [None]
  - DIAPHRAGMATIC DISORDER [None]
  - DISTURBANCE IN ATTENTION [None]
  - DYSKINESIA [None]
  - EAR PAIN [None]
  - GAIT DISTURBANCE [None]
  - HYPERTONIA [None]
  - HYPOAESTHESIA [None]
  - THINKING ABNORMAL [None]
